FAERS Safety Report 13232325 (Version 10)
Quarter: 2017Q2

REPORT INFORMATION
  Report Type: Report from Study
  Country: US (occurrence: US)
  Receive Date: 20170214
  Receipt Date: 20170626
  Transmission Date: 20170830
  Serious: Yes (Hospitalization, Other)
  Sender: FDA-Public Use
  Company Number: US-GILEAD-2017-0256824

PATIENT
  Age: 39 Year
  Sex: Female

DRUGS (6)
  1. REMODULIN [Concomitant]
     Active Substance: TREPROSTINIL
  2. AMBRISENTAN [Suspect]
     Active Substance: AMBRISENTAN
     Indication: PRODUCT USED FOR UNKNOWN INDICATION
     Dosage: 10 MG, QD
     Route: 065
     Dates: start: 20150716
  3. UPTRAVI [Concomitant]
     Active Substance: SELEXIPAG
  4. REVATIO [Concomitant]
     Active Substance: SILDENAFIL CITRATE
  5. ELIQUIS [Concomitant]
     Active Substance: APIXABAN
  6. SILDENAFIL CITRATE. [Concomitant]
     Active Substance: SILDENAFIL CITRATE

REACTIONS (17)
  - Vomiting [Not Recovered/Not Resolved]
  - Lung disorder [Unknown]
  - Alopecia [Not Recovered/Not Resolved]
  - Dizziness [Unknown]
  - Headache [Unknown]
  - Vaginal haemorrhage [Unknown]
  - Feeding disorder [Unknown]
  - Life support [Unknown]
  - Pneumothorax [Unknown]
  - Syncope [Not Recovered/Not Resolved]
  - Pneumonia [Unknown]
  - Chest pain [Unknown]
  - Pulmonary pain [Unknown]
  - Unevaluable event [Not Recovered/Not Resolved]
  - Sepsis [Not Recovered/Not Resolved]
  - Nausea [Unknown]
  - Dry mouth [Unknown]
